FAERS Safety Report 9472077 (Version 1)
Quarter: 2013Q3

REPORT INFORMATION
  Report Type: Spontaneous
  Country: US (occurrence: US)
  Receive Date: 20130823
  Receipt Date: 20130823
  Transmission Date: 20140515
  Serious: Yes (Hospitalization)
  Sender: FDA-Public Use
  Company Number: US-BIOGENIDEC-2013BI078333

PATIENT
  Age: 44 Year
  Sex: Male

DRUGS (4)
  1. AVONEX [Suspect]
     Indication: MULTIPLE SCLEROSIS
     Dosage: DOSE UNIT:30
     Route: 030
     Dates: start: 20110324
  2. BACLOFEN [Concomitant]
  3. PERCOCET [Concomitant]
  4. ZANAFLEX [Concomitant]

REACTIONS (1)
  - Multiple sclerosis relapse [Unknown]
